FAERS Safety Report 9514095 (Version 2)
Quarter: 2013Q4

REPORT INFORMATION
  Report Type: Report from Study
  Country: JP (occurrence: JP)
  Receive Date: 20130910
  Receipt Date: 20131004
  Transmission Date: 20140711
  Serious: No
  Sender: FDA-Public Use
  Company Number: JP-ALLERGAN-1313500US

PATIENT
  Age: 71 Year
  Sex: Male
  Weight: 73 kg

DRUGS (4)
  1. BOTULINUM TOXIN TYPE A - GENERAL (9060X) [Suspect]
     Indication: MUSCLE SPASMS
     Dosage: 300 UNITS, SINGLE
     Route: 030
     Dates: start: 20120710, end: 20120710
  2. BOTULINUM TOXIN TYPE A - GENERAL (9060X) [Suspect]
     Dosage: 350 UNITS, SINGLE
     Route: 030
     Dates: start: 20121113, end: 20121113
  3. BOTULINUM TOXIN TYPE A - GENERAL (9060X) [Suspect]
     Dosage: 200 UNK, SINGLE
     Route: 030
     Dates: start: 20130312, end: 20130312
  4. BOTULINUM TOXIN TYPE A - GENERAL (9060X) [Suspect]
     Dosage: 200 UNITS, SINGLE
     Route: 030
     Dates: start: 20130625, end: 20130625

REACTIONS (1)
  - No adverse event [Unknown]
